FAERS Safety Report 16623869 (Version 1)
Quarter: 2019Q3

REPORT INFORMATION
  Report Type: Report from Study
  Country: None (occurrence: DE)
  Receive Date: 20190724
  Receipt Date: 20190724
  Transmission Date: 20191004
  Serious: Yes (Death, Hospitalization)
  Sender: FDA-Public Use
  Company Number: DE-ABBVIE-19K-062-2863733-00

PATIENT
  Sex: Male

DRUGS (1)
  1. DUODOPA [Suspect]
     Active Substance: CARBIDOPA\LEVODOPA
     Indication: PARKINSON^S DISEASE
     Dosage: MD 5.2 ML; CRD 3 ML/HR; CRN 1.5 ML/HR; ED 2.6 ML
     Route: 050
     Dates: start: 20161012

REACTIONS (2)
  - Cardiac arrest [Fatal]
  - Pneumonia [Fatal]
